FAERS Safety Report 10793950 (Version 6)
Quarter: 2016Q1

REPORT INFORMATION
  Report Type: Spontaneous
  Country: US (occurrence: US)
  Receive Date: 20150213
  Receipt Date: 20160115
  Transmission Date: 20160525
  Serious: Yes (Hospitalization, Other)
  Sender: FDA-Public Use
  Company Number: US-PFIZER INC-2015055958

PATIENT
  Age: 59 Year
  Sex: Male
  Weight: 120.18 kg

DRUGS (3)
  1. REVATIO [Suspect]
     Active Substance: SILDENAFIL CITRATE
     Indication: PULMONARY HYPERTENSION
     Dosage: 20 MG, 2X/DAY
     Route: 048
     Dates: start: 2007
  2. LISINOPRIL. [Concomitant]
     Active Substance: LISINOPRIL
  3. METFORMIN [Concomitant]
     Active Substance: METFORMIN HYDROCHLORIDE
     Dosage: 1000 MG, 2X/DAY

REACTIONS (11)
  - Neurogenic bladder [Recovering/Resolving]
  - Blood urea increased [Recovering/Resolving]
  - Staphylococcal infection [Recovered/Resolved]
  - Bladder irritation [Unknown]
  - Cardiac disorder [Recovered/Resolved]
  - Condition aggravated [Not Recovered/Not Resolved]
  - Urinary tract infection [Recovering/Resolving]
  - Blood pressure decreased [Recovered/Resolved]
  - Chronic obstructive pulmonary disease [Not Recovered/Not Resolved]
  - Bladder dysfunction [Unknown]
  - Blood potassium decreased [Recovering/Resolving]

NARRATIVE: CASE EVENT DATE: 2010
